FAERS Safety Report 24433956 (Version 1)
Quarter: 2024Q4

REPORT INFORMATION
  Report Type: Spontaneous
  Country: IL (occurrence: IL)
  Receive Date: 20241014
  Receipt Date: 20241014
  Transmission Date: 20250114
  Serious: Yes (Life-Threatening, Hospitalization, Other)
  Sender: GLAXOSMITHKLINE
  Company Number: IL-GSK-IL2024EME125365

PATIENT

DRUGS (2)
  1. WELLBUTRIN XL [Suspect]
     Active Substance: BUPROPION HYDROCHLORIDE
     Indication: Product used for unknown indication
     Dosage: 450 MG
     Dates: start: 20240124
  2. ZYPREXA [Concomitant]
     Active Substance: OLANZAPINE
     Indication: Product used for unknown indication
     Dosage: 5 MG

REACTIONS (7)
  - Loss of consciousness [Unknown]
  - Seizure [Unknown]
  - Decreased appetite [Unknown]
  - Dyskinesia [Unknown]
  - Blood pressure increased [Unknown]
  - Heart rate increased [Unknown]
  - Asthenia [Unknown]
